FAERS Safety Report 12569911 (Version 1)
Quarter: 2016Q3

REPORT INFORMATION
  Report Type: Spontaneous
  Country: CL (occurrence: CL)
  Receive Date: 20160719
  Receipt Date: 20160719
  Transmission Date: 20161109
  Serious: Yes (Other)
  Sender: FDA-Public Use
  Company Number: CL-GLAXOSMITHKLINE-CL2016GSK098833

PATIENT
  Age: 64 Year
  Sex: Female

DRUGS (1)
  1. ALENYS [Suspect]
     Active Substance: FLUTICASONE FUROATE
     Indication: PRODUCT USED FOR UNKNOWN INDICATION
     Dosage: 2 PUFF(S), QD AT NIGHT
     Route: 045
     Dates: start: 201605, end: 201607

REACTIONS (2)
  - Vision blurred [Recovered/Resolved with Sequelae]
  - Eye complication associated with device [Unknown]

NARRATIVE: CASE EVENT DATE: 201605
